FAERS Safety Report 19920955 (Version 1)
Quarter: 2021Q4

REPORT INFORMATION
  Report Type: Spontaneous
  Country: US (occurrence: US)
  Receive Date: 20211005
  Receipt Date: 20211005
  Transmission Date: 20220304
  Serious: No
  Sender: FDA-Public Use
  Company Number: US-ADAMAS PHARMA, LLC-2020ADA02926

PATIENT
  Sex: Female

DRUGS (1)
  1. GOCOVRI [Suspect]
     Active Substance: AMANTADINE
     Dosage: UNK
     Route: 048
     Dates: start: 202011, end: 2020

REACTIONS (2)
  - Paraesthesia [Unknown]
  - Feeling abnormal [Unknown]

NARRATIVE: CASE EVENT DATE: 20200101
